FAERS Safety Report 5041111-X (Version None)
Quarter: 2006Q3

REPORT INFORMATION
  Report Type: 
  Country: None (occurrence: None)
  Receive Date: 20060703
  Receipt Date: 20050819
  Transmission Date: 20061208
  Serious: Yes (Other)
  Sender: FDA-Public Use
  Company Number: US-ROCHE-415262

PATIENT
  Sex: Female
  Weight: 3.7 kg

DRUGS (4)
  1. ACCUTANE [Suspect]
     Dates: start: 19920708, end: 19921115
  2. GENERIC UNKNOWN [Concomitant]
     Dosage: TRADE NAME: KENALOG.
     Dates: start: 19920814
  3. PRENATAL VITAMINS [Concomitant]
     Indication: VITAMIN SUPPLEMENTATION
  4. TYLENOL (CAPLET) [Concomitant]

REACTIONS (5)
  - ABORTION SPONTANEOUS [None]
  - CONTUSION [None]
  - DRUG EXPOSURE BEFORE PREGNANCY [None]
  - FALL [None]
  - NORMAL NEWBORN [None]
